FAERS Safety Report 25150819 (Version 1)
Quarter: 2025Q2

REPORT INFORMATION
  Report Type: Spontaneous
  Country: US (occurrence: None)
  Receive Date: 20250402
  Receipt Date: 20250402
  Transmission Date: 20250716
  Serious: Yes (Hospitalization, Disabling)
  Sender: FDA-CTU
  Company Number: None

PATIENT
  Age: 40 Year
  Sex: Male
  Weight: 180.49 kg

DRUGS (3)
  1. OZEMPIC [Suspect]
     Active Substance: SEMAGLUTIDE
     Indication: Type 2 diabetes mellitus
     Route: 058
     Dates: start: 20240601, end: 20250119
  2. OZEMPIC [Suspect]
     Active Substance: SEMAGLUTIDE
     Indication: Obesity
  3. ozempic 0.5 mg/ml; 1 mg SQ weekly [Concomitant]
     Dates: start: 20240601, end: 20250119

REACTIONS (12)
  - Acute respiratory failure [None]
  - Acute kidney injury [None]
  - Anaemia [None]
  - Hypocalcaemia [None]
  - Hypokalaemia [None]
  - Hypomagnesaemia [None]
  - Troponin increased [None]
  - Obstructive pancreatitis [None]
  - Hyponatraemia [None]
  - Septic shock [None]
  - Vitamin D deficiency [None]
  - Haemodialysis [None]

NARRATIVE: CASE EVENT DATE: 20250125
